FAERS Safety Report 18663628 (Version 8)
Quarter: 2021Q1

REPORT INFORMATION
  Report Type: Report from Study
  Country: BR (occurrence: BR)
  Receive Date: 20201224
  Receipt Date: 20210205
  Transmission Date: 20210419
  Serious: Yes (Life-Threatening, Hospitalization, Other)
  Sender: FDA-Public Use
  Company Number: BR-GILEAD-2020-0510637

PATIENT
  Age: 43 Year
  Sex: Male
  Weight: 96 kg

DRUGS (67)
  1. OXYGEN. [Concomitant]
     Active Substance: OXYGEN
     Dosage: 55 %
     Route: 007
     Dates: start: 20201129
  2. OXYGEN. [Concomitant]
     Active Substance: OXYGEN
     Dosage: 45 %
     Route: 007
     Dates: start: 20201125
  3. OXYGEN. [Concomitant]
     Active Substance: OXYGEN
     Dosage: 55 %
     Route: 007
     Dates: start: 20201202
  4. OXYGEN. [Concomitant]
     Active Substance: OXYGEN
     Dosage: 50 %
     Route: 007
     Dates: start: 20201207
  5. PIPERACILLIN. [Concomitant]
     Active Substance: PIPERACILLIN SODIUM
  6. AZITHROMYCIN ANHYDROUS. [Concomitant]
     Active Substance: AZITHROMYCIN ANHYDROUS
     Indication: COVID-19
     Dosage: 500 MG, QD
     Dates: start: 20201122
  7. DEXAMETHASONE. [Concomitant]
     Active Substance: DEXAMETHASONE
     Indication: COVID-19
     Dosage: 6 MG, QD
     Dates: start: 20201122
  8. OXYGEN. [Concomitant]
     Active Substance: OXYGEN
     Dosage: 40 %
     Route: 007
     Dates: start: 20201128
  9. OXYGEN. [Concomitant]
     Active Substance: OXYGEN
     Dosage: 50 %
     Route: 007
     Dates: start: 20201208
  10. OXYGEN. [Concomitant]
     Active Substance: OXYGEN
     Dosage: 15 L
     Route: 055
     Dates: start: 20201126
  11. OXYGEN. [Concomitant]
     Active Substance: OXYGEN
     Dosage: 50 %
     Route: 007
     Dates: start: 20201204
  12. OXYGEN. [Concomitant]
     Active Substance: OXYGEN
     Dosage: 75 %
     Route: 007
     Dates: start: 20201221
  13. OXYGEN. [Concomitant]
     Active Substance: OXYGEN
     Dosage: 100 %
     Dates: start: 20201221
  14. OXYGEN. [Concomitant]
     Active Substance: OXYGEN
     Dosage: 35 %
     Dates: start: 20210102
  15. HEPARIN [Concomitant]
     Active Substance: HEPARIN SODIUM
     Indication: PROPHYLAXIS
     Dosage: 5000 IU, 3 DAY
     Dates: start: 20201217, end: 20210105
  16. ATEZOLIZUMAB. [Concomitant]
     Active Substance: ATEZOLIZUMAB
  17. TOCILIZUMAB. [Suspect]
     Active Substance: TOCILIZUMAB
     Indication: COVID-19 PNEUMONIA
     Dosage: 100 ML
     Route: 042
     Dates: start: 20201123
  18. DEXMEDETOMIDINE. [Concomitant]
     Active Substance: DEXMEDETOMIDINE
     Indication: ANXIETY
     Dosage: 100 UG
     Dates: start: 20201122
  19. OXYGEN. [Concomitant]
     Active Substance: OXYGEN
     Dosage: 15 L
     Route: 055
     Dates: start: 20201123, end: 20201124
  20. OXYGEN. [Concomitant]
     Active Substance: OXYGEN
     Dosage: 80 %
     Route: 007
     Dates: start: 20201201
  21. OXYGEN. [Concomitant]
     Active Substance: OXYGEN
     Dosage: 60 %
     Route: 007
     Dates: start: 20201127
  22. OXYGEN. [Concomitant]
     Active Substance: OXYGEN
     Dosage: 40 %
     Route: 007
     Dates: start: 20201128
  23. OXYGEN. [Concomitant]
     Active Substance: OXYGEN
     Dosage: 50 %
     Route: 007
     Dates: start: 20201203
  24. OXYGEN. [Concomitant]
     Active Substance: OXYGEN
     Dosage: 45 %
     Route: 007
     Dates: start: 20201202
  25. OXYGEN. [Concomitant]
     Active Substance: OXYGEN
     Dosage: 60 %
     Route: 007
     Dates: start: 20201204
  26. OXYGEN. [Concomitant]
     Active Substance: OXYGEN
     Dosage: 45 %
     Route: 007
     Dates: start: 20201217
  27. OXYGEN. [Concomitant]
     Active Substance: OXYGEN
     Dosage: 60 %
     Route: 007
     Dates: start: 20201218, end: 20201219
  28. OXYGEN. [Concomitant]
     Active Substance: OXYGEN
     Dosage: 80 %
     Route: 007
     Dates: start: 20201216
  29. OXYGEN. [Concomitant]
     Active Substance: OXYGEN
     Dosage: 65 %
     Dates: start: 20201222
  30. REMDESIVIR. [Suspect]
     Active Substance: REMDESIVIR
     Indication: COVID-19 PNEUMONIA
     Dosage: 100 ML, QD,TOTAL VOLUME OF BLINDED RDV PRIOR AE IS 100 ML TOTAL VOLUME PRIOR SAE IS 100 ML
     Route: 042
     Dates: start: 20201123, end: 20201202
  31. OXYGEN. [Concomitant]
     Active Substance: OXYGEN
     Dosage: 40 %
     Route: 007
     Dates: start: 20201212, end: 20201213
  32. OXYGEN. [Concomitant]
     Active Substance: OXYGEN
     Dosage: 70 %
     Route: 007
     Dates: start: 20201207
  33. OXYGEN. [Concomitant]
     Active Substance: OXYGEN
     Dosage: 55 %
     Route: 007
     Dates: start: 20201213
  34. OXYGEN. [Concomitant]
     Active Substance: OXYGEN
     Dosage: 40 %
     Route: 007
     Dates: start: 20201206
  35. OXYGEN. [Concomitant]
     Active Substance: OXYGEN
     Dosage: 40 %
     Route: 007
     Dates: start: 20201214
  36. OXYGEN. [Concomitant]
     Active Substance: OXYGEN
     Dosage: 40 %
     Route: 007
     Dates: start: 20201125
  37. TOCILIZUMAB. [Suspect]
     Active Substance: TOCILIZUMAB
     Dosage: 100 ML,MOST RECENT DOSE (100 ML) OF BLINDED TOCI PRIOR TO LIFE THREATENING SEPTIC SHOCK ONSET
     Route: 042
     Dates: start: 20201217
  38. DIPYRONE [Concomitant]
     Active Substance: DIPYRONE
     Indication: COVID-19
     Dosage: 1000 MG .25/DAY
     Dates: start: 20201122
  39. NORADRENALINE (NORPINEPHRINE) [Concomitant]
     Active Substance: NOREPINEPHRINE
     Indication: HYPOTENSION
     Dosage: 20 ML
     Dates: start: 20201127
  40. OXYGEN. [Concomitant]
     Active Substance: OXYGEN
     Dosage: 45 %
     Route: 007
     Dates: start: 20201211
  41. OXYGEN. [Concomitant]
     Active Substance: OXYGEN
     Dosage: 65 %
     Route: 007
     Dates: start: 20201216
  42. ANIDULAFUNGIN [Concomitant]
     Active Substance: ANIDULAFUNGIN
  43. VANCOMYCIN [Concomitant]
     Active Substance: VANCOMYCIN
  44. PANTOPRAZOLE [Concomitant]
     Active Substance: PANTOPRAZOLE
     Dosage: 40 MG, QD
     Dates: start: 20201122
  45. OXYGEN. [Concomitant]
     Active Substance: OXYGEN
     Dosage: 100 %
     Dates: start: 20201123
  46. OXYGEN. [Concomitant]
     Active Substance: OXYGEN
     Dosage: 55 %
     Route: 007
     Dates: start: 20201130
  47. OXYGEN. [Concomitant]
     Active Substance: OXYGEN
     Dosage: 50 %
     Route: 007
     Dates: start: 20201207, end: 20201208
  48. OXYGEN. [Concomitant]
     Active Substance: OXYGEN
     Dosage: 40 %
     Route: 007
     Dates: start: 20201211
  49. OXYGEN. [Concomitant]
     Active Substance: OXYGEN
     Dosage: 70 %
     Route: 007
     Dates: start: 20201214
  50. OXYGEN. [Concomitant]
     Active Substance: OXYGEN
     Dosage: 50 %
     Route: 007
     Dates: start: 20201207
  51. OXYGEN. [Concomitant]
     Active Substance: OXYGEN
     Dosage: 55 %
     Route: 007
     Dates: start: 20201220
  52. OXYGEN. [Concomitant]
     Active Substance: OXYGEN
     Dosage: 55 %
     Route: 007
     Dates: start: 20201222
  53. METOCLOPRAMIDE. [Concomitant]
     Active Substance: METOCLOPRAMIDE
     Dosage: 5 MG .33/DAY
     Dates: start: 20201122
  54. OXYGEN. [Concomitant]
     Active Substance: OXYGEN
     Dosage: 55 %
     Route: 007
     Dates: start: 20201203
  55. OXYGEN. [Concomitant]
     Active Substance: OXYGEN
     Dosage: 55 %
     Route: 007
     Dates: start: 20201205
  56. OXYGEN. [Concomitant]
     Active Substance: OXYGEN
     Dosage: 50 %
     Route: 007
     Dates: start: 20201209, end: 20201210
  57. OXYGEN. [Concomitant]
     Active Substance: OXYGEN
     Dosage: 50 %
     Route: 007
     Dates: start: 20201212
  58. OXYGEN. [Concomitant]
     Active Substance: OXYGEN
     Dosage: 60 %
     Route: 007
     Dates: start: 20201201
  59. OXYGEN. [Concomitant]
     Active Substance: OXYGEN
     Dosage: 60 %
     Route: 007
     Dates: start: 20201209
  60. OXYGEN. [Concomitant]
     Active Substance: OXYGEN
     Dosage: 80 %
     Route: 007
     Dates: start: 20201123
  61. OXYGEN. [Concomitant]
     Active Substance: OXYGEN
     Dosage: 80 %
     Dates: start: 20201224
  62. CEFTRIAXONE. [Concomitant]
     Active Substance: CEFTRIAXONE
     Indication: COVID-19
     Dosage: 2 G, QD
     Dates: start: 20201122
  63. ENOXAPARIN [Concomitant]
     Active Substance: ENOXAPARIN
     Dosage: 40 MG .5 DAY
     Dates: start: 20201122
  64. OXYGEN. [Concomitant]
     Active Substance: OXYGEN
     Dosage: 40 %
     Route: 007
     Dates: start: 20201127
  65. OXYGEN. [Concomitant]
     Active Substance: OXYGEN
     Dosage: 55 %
     Route: 007
     Dates: start: 20201218
  66. OXYGEN. [Concomitant]
     Active Substance: OXYGEN
     Dosage: 80 %
     Dates: start: 20201220
  67. OXYGEN. [Concomitant]
     Active Substance: OXYGEN
     Dosage: 50 %
     Dates: start: 20201219

REACTIONS (3)
  - Catheter site haemorrhage [Recovered/Resolved]
  - Septic shock [Recovered/Resolved]
  - Renal injury [Recovering/Resolving]

NARRATIVE: CASE EVENT DATE: 20201217
